FAERS Safety Report 9105752 (Version 1)
Quarter: 2013Q1

REPORT INFORMATION
  Report Type: Spontaneous
  Country: US (occurrence: US)
  Receive Date: 20130220
  Receipt Date: 20130220
  Transmission Date: 20140127
  Serious: Yes (Hospitalization)
  Sender: FDA-Public Use
  Company Number: US-RB-050085-13

PATIENT
  Age: 64 Year
  Sex: Female

DRUGS (8)
  1. SUBOXONE TABLET [Suspect]
     Indication: DRUG DEPENDENCE
     Route: 060
     Dates: start: 2009
  2. SUBOXONE FILM [Suspect]
     Indication: DRUG DEPENDENCE
     Dosage: SUBOXONE FILM
     Route: 060
     Dates: end: 201301
  3. CELEXA [Concomitant]
     Indication: DEPRESSION
     Route: 065
  4. NALBUMETONE [Concomitant]
     Indication: ARTHRITIS
     Route: 065
  5. RISPERIDONE [Concomitant]
     Indication: DEPRESSION
     Dosage: 0.5 MG 1-2 TABLETS EVERY NIGHT
     Route: 065
  6. BENZTROPINE [Concomitant]
     Indication: DEPRESSION
     Route: 065
  7. LORAZEPAM [Concomitant]
     Indication: ANXIETY
     Route: 065
  8. CLONAZEPAM [Concomitant]
     Indication: ANXIETY
     Route: 065

REACTIONS (7)
  - Osteoarthritis [Recovered/Resolved]
  - Condition aggravated [Recovered/Resolved]
  - Drug withdrawal syndrome [Recovered/Resolved]
  - Nausea [Recovered/Resolved]
  - Tremor [Recovered/Resolved]
  - Hyperhidrosis [Recovered/Resolved]
  - Pain [Recovered/Resolved]
